FAERS Safety Report 8129622-1 (Version None)
Quarter: 2012Q1

REPORT INFORMATION
  Report Type: 
  Country: None (occurrence: None)
  Receive Date: 20120210
  Receipt Date: 20120201
  Transmission Date: 20120608
  Serious: Yes (Life-Threatening, Hospitalization)
  Sender: FDA-Public Use
  Company Number: ES-VIIV HEALTHCARE LIMITED-B0779300A

PATIENT
  Sex: Female
  Weight: 46.5 kg

DRUGS (5)
  1. FERRO GRADUMET [Concomitant]
     Indication: MINERAL SUPPLEMENTATION
     Route: 065
  2. ETRAVIRINE [Suspect]
     Indication: HIV INFECTION
     Dosage: 800MG PER DAY
     Dates: start: 20090310
  3. RALTEGRAVIR [Suspect]
     Indication: HIV INFECTION
     Dosage: 800MG PER DAY
     Dates: start: 20090310
  4. MARAVIROC [Suspect]
     Indication: HIV INFECTION
     Dosage: 1200MG PER DAY
     Route: 048
     Dates: start: 20090310
  5. METHADONE HCL [Suspect]
     Route: 065

REACTIONS (14)
  - MITRAL VALVE STENOSIS [None]
  - PULMONARY HYPERTENSION [None]
  - ESCHERICHIA TEST POSITIVE [None]
  - LEUKOCYTOSIS [None]
  - TORSADE DE POINTES [None]
  - DRUG INTERACTION [None]
  - HEPATOMEGALY [None]
  - NIGHT SWEATS [None]
  - ISCHAEMIC HEPATITIS [None]
  - LOSS OF CONSCIOUSNESS [None]
  - CARDIAC MURMUR [None]
  - MITRAL VALVE INCOMPETENCE [None]
  - CARDIOMEGALY [None]
  - CHOLESTASIS [None]
